FAERS Safety Report 15452341 (Version 1)
Quarter: 2018Q4

REPORT INFORMATION
  Report Type: Spontaneous
  Country: LB (occurrence: LB)
  Receive Date: 20181001
  Receipt Date: 20181001
  Transmission Date: 20190204
  Serious: Yes (Other)
  Sender: FDA-Public Use
  Company Number: LB-SILVERGATE PHARMACEUTICALS, INC.-2018SIL00052

PATIENT
  Age: 87 Year
  Sex: Female
  Weight: 82 kg

DRUGS (5)
  1. VILDAGLIPTIN [Concomitant]
     Active Substance: VILDAGLIPTIN
     Indication: TYPE 2 DIABETES MELLITUS
     Dosage: 50 MG
     Route: 065
  2. GLYBURIDE-METFORMIN 2.5 MG/400 MG [Concomitant]
     Indication: TYPE 2 DIABETES MELLITUS
     Dosage: 2.5 MG/400 MG
     Route: 065
  3. LISINOPRIL. [Suspect]
     Active Substance: LISINOPRIL
     Indication: HYPERTENSION
     Dosage: 20 MG
     Route: 065
  4. LEVOTHYROXINE. [Concomitant]
     Active Substance: LEVOTHYROXINE
     Indication: HYPOTHYROIDISM
     Dosage: 100 ?G, 1X/DAY
     Route: 065
  5. HYDROCHLOROTHIAZIDE-LISINOPRIL [Suspect]
     Active Substance: HYDROCHLOROTHIAZIDE\LISINOPRIL
     Indication: HYPERTENSION
     Dosage: 12.5 MG/20 MG
     Route: 065

REACTIONS (1)
  - Pemphigoid [Recovered/Resolved]
